FAERS Safety Report 26044344 (Version 1)
Quarter: 2025Q4

REPORT INFORMATION
  Report Type: Spontaneous
  Country: EU (occurrence: EU)
  Receive Date: 20251114
  Receipt Date: 20251114
  Transmission Date: 20260119
  Serious: Yes (Death, Other)
  Sender: SANOFI AVENTIS
  Company Number: EU-SA-2025SA336895

PATIENT
  Age: 40 Year
  Sex: Male

DRUGS (7)
  1. HEPARIN [Suspect]
     Active Substance: HEPARIN SODIUM
     Indication: Deep vein thrombosis
     Dosage: UNK
  2. HEPARIN [Suspect]
     Active Substance: HEPARIN SODIUM
     Indication: Paraneoplastic thrombosis
  3. ENOXAPARIN SODIUM [Suspect]
     Active Substance: ENOXAPARIN SODIUM
     Indication: Paraneoplastic thrombosis
     Dosage: UNK, ADJUSTED DOSE
  4. ENOXAPARIN SODIUM [Suspect]
     Active Substance: ENOXAPARIN SODIUM
     Indication: Deep vein thrombosis
     Dosage: 2?1 ML S.C., AT A WEIGHT OF 75 KG
     Route: 058
  5. ENOXAPARIN SODIUM [Suspect]
     Active Substance: ENOXAPARIN SODIUM
     Dosage: UNK, THERAPEUTIC DOSE
  6. SULODEXIDE [Suspect]
     Active Substance: SULODEXIDE
     Indication: Paraneoplastic thrombosis
     Dosage: 2?600 LSU PER DAY
     Route: 042
  7. SULODEXIDE [Suspect]
     Active Substance: SULODEXIDE
     Indication: Deep vein thrombosis

REACTIONS (2)
  - Ischaemic stroke [Fatal]
  - Drug ineffective [Fatal]
